FAERS Safety Report 8352317-6 (Version None)
Quarter: 2012Q2

REPORT INFORMATION
  Report Type: 
  Country: None (occurrence: None)
  Receive Date: 20120511
  Receipt Date: 20120504
  Transmission Date: 20120825
  Serious: Yes (Other)
  Sender: FDA-Public Use
  Company Number: RU-JNJFOC-20120408768

PATIENT
  Sex: Female

DRUGS (32)
  1. DOXORUBICIN HCL [Suspect]
     Indication: BREAST CANCER
     Dosage: CYCLE 8
     Route: 042
  2. DOXORUBICIN HCL [Suspect]
     Dosage: CYCLE 6
     Route: 065
  3. DOXORUBICIN HCL [Suspect]
     Dosage: CYCLE 2
     Route: 065
  4. DOXORUBICIN HCL [Suspect]
     Dosage: CYCLE 7
     Route: 042
  5. DOXORUBICIN HCL [Suspect]
     Dosage: CYCLE 5
     Route: 042
  6. DOXORUBICIN HCL [Suspect]
     Dosage: CYCLE 3
     Route: 065
  7. DOCETAXEL [Suspect]
     Indication: BREAST CANCER
     Dosage: CYCLE 1
     Route: 065
  8. DOCETAXEL [Suspect]
     Dosage: CYCLE 6
     Route: 065
  9. DOCETAXEL [Suspect]
     Dosage: CYCLE 8
     Route: 065
  10. DOXORUBICIN HCL [Suspect]
     Dosage: CYCLE 4
     Route: 042
  11. DOXORUBICIN HCL [Suspect]
     Dosage: CYCLE 3
     Route: 042
  12. DOXORUBICIN HCL [Suspect]
     Dosage: CYCLE 2
     Route: 042
  13. DOXORUBICIN HCL [Suspect]
     Dosage: CYCLE 4
     Route: 065
  14. PACLITAXEL [Suspect]
     Indication: BREAST CANCER
     Dosage: CYCLE 6
     Route: 065
  15. PACLITAXEL [Suspect]
     Dosage: CYCLE 7
     Route: 065
  16. DOCETAXEL [Suspect]
     Dosage: CYCLE 5
     Route: 065
  17. DOXORUBICIN HCL [Suspect]
     Dosage: CYCLE 8
     Route: 065
  18. DOXORUBICIN HCL [Suspect]
     Dosage: CYCLE 7
     Route: 065
  19. DOXORUBICIN HCL [Suspect]
     Dosage: CYCLE 6
     Route: 042
  20. DOXORUBICIN HCL [Suspect]
     Dosage: CYCLE 1
     Route: 042
  21. DOXORUBICIN HCL [Suspect]
     Dosage: CYCLE 5
     Route: 065
  22. PACLITAXEL [Suspect]
     Dosage: CYCLE 5
     Route: 065
  23. PACLITAXEL [Suspect]
     Dosage: CYCLE 2
     Route: 065
  24. PACLITAXEL [Suspect]
     Dosage: CYCLE 1
     Route: 065
  25. PACLITAXEL [Suspect]
     Dosage: CYCLE 8
     Route: 065
  26. DOCETAXEL [Suspect]
     Dosage: CYCLE 3
     Route: 065
  27. DOCETAXEL [Suspect]
     Dosage: CYCLE 2
     Route: 065
  28. DOXORUBICIN HCL [Suspect]
     Dosage: CYCLE 1
     Route: 065
  29. PACLITAXEL [Suspect]
     Dosage: CYCLE 4
     Route: 065
  30. PACLITAXEL [Suspect]
     Dosage: CYCLE 2
     Route: 065
  31. DOCETAXEL [Suspect]
     Dosage: CYCLE 7
     Route: 065
  32. DOCETAXEL [Suspect]
     Dosage: CYCLE 4
     Route: 065

REACTIONS (4)
  - EJECTION FRACTION DECREASED [None]
  - CARDIOTOXICITY [None]
  - ELECTROCARDIOGRAM QT PROLONGED [None]
  - ARRHYTHMIA [None]
